FAERS Safety Report 5726420-0 (Version None)
Quarter: 2008Q2

REPORT INFORMATION
  Report Type: 
  Country: None (occurrence: None)
  Receive Date: 20080502
  Receipt Date: 20080430
  Transmission Date: 20081010
  Serious: Yes (Other)
  Sender: FDA-Public Use
  Company Number: A0725635A

PATIENT
  Age: 44 Year
  Sex: Male

DRUGS (3)
  1. PAXIL CR [Suspect]
     Indication: BIPOLAR DISORDER
     Dosage: 37.5MG IN THE MORNING
     Route: 048
     Dates: start: 20011201
  2. SEROQUEL [Concomitant]
     Dosage: 300MG PER DAY
  3. DEPAKOTE [Concomitant]
     Dosage: 900MG PER DAY

REACTIONS (20)
  - ABNORMAL DREAMS [None]
  - ACTIVITIES OF DAILY LIVING IMPAIRED [None]
  - ANGER [None]
  - DEPRESSION [None]
  - DISTURBANCE IN ATTENTION [None]
  - DRUG ADMINISTRATION ERROR [None]
  - FEELING ABNORMAL [None]
  - HANGOVER [None]
  - ILL-DEFINED DISORDER [None]
  - INFLUENZA LIKE ILLNESS [None]
  - MALAISE [None]
  - MANIA [None]
  - MEMORY IMPAIRMENT [None]
  - MENTAL IMPAIRMENT [None]
  - MOTOR DYSFUNCTION [None]
  - NIGHT SWEATS [None]
  - PERSONALITY CHANGE [None]
  - PSYCHOMOTOR HYPERACTIVITY [None]
  - SERUM SEROTONIN DECREASED [None]
  - WITHDRAWAL SYNDROME [None]
